FAERS Safety Report 25691313 (Version 4)
Quarter: 2025Q4

REPORT INFORMATION
  Report Type: Spontaneous
  Country: JP (occurrence: JP)
  Receive Date: 20250818
  Receipt Date: 20251002
  Transmission Date: 20260118
  Serious: Yes (Hospitalization, Other)
  Sender: ELI LILLY AND COMPANY
  Company Number: JP-ELI_LILLY_AND_COMPANY-JP202508014199

PATIENT
  Age: 79 Year
  Sex: Male

DRUGS (2)
  1. KISUNLA [Suspect]
     Active Substance: DONANEMAB-AZBT
     Indication: Dementia Alzheimer^s type
     Dosage: UNK
     Route: 041
     Dates: start: 20250515
  2. KISUNLA [Suspect]
     Active Substance: DONANEMAB-AZBT
     Dosage: 1400 MG, OTHER
     Route: 041
     Dates: end: 20250804

REACTIONS (7)
  - White blood cell count decreased [Recovered/Resolved]
  - Platelet count decreased [Recovered/Resolved]
  - Anaphylactic reaction [Recovered/Resolved]
  - Hepatic enzyme increased [Recovered/Resolved]
  - Bronchial wall thickening [Unknown]
  - Lung opacity [Unknown]
  - Bronchitis [Unknown]

NARRATIVE: CASE EVENT DATE: 20250804
